FAERS Safety Report 4330297-8 (Version None)
Quarter: 2004Q2

REPORT INFORMATION
  Report Type: 
  Country: None (occurrence: None)
  Receive Date: 20040401
  Receipt Date: 20040401
  Transmission Date: 20050107
  Serious: Yes (Hospitalization)
  Sender: FDA-Public Use
  Company Number: None

PATIENT
  Sex: Male
  Weight: 73.9363 kg

DRUGS (3)
  1. PEG-INTRON [Suspect]
     Indication: HEPATITIS C
     Dosage: 0.4ML WEEKLY SUBCUTANEOUS
     Route: 058
     Dates: start: 20030501, end: 20040325
  2. RIBAVIRIN [Concomitant]
  3. PROLEUKIN [Concomitant]

REACTIONS (6)
  - ANXIETY [None]
  - DEPRESSION [None]
  - IRRITABILITY [None]
  - MAJOR DEPRESSION [None]
  - SLEEP DISORDER [None]
  - TREATMENT NONCOMPLIANCE [None]
